FAERS Safety Report 19877434 (Version 4)
Quarter: 2022Q2

REPORT INFORMATION
  Report Type: Other
  Country: US (occurrence: None)
  Receive Date: 20210924
  Receipt Date: 20220404
  Transmission Date: 20220721
  Serious: Yes (Hospitalization)
  Sender: FDA-Public Use
  Company Number: US-ROCHE-2912928

PATIENT
  Age: 50 Year
  Sex: Male
  Weight: 90.800 kg

DRUGS (3)
  1. OCREVUS [Suspect]
     Active Substance: OCRELIZUMAB
     Indication: Relapsing-remitting multiple sclerosis
     Dosage: HALF DOSE, INFUSE 600MG INTRAVENOUSLY EVERY 6 MONTH(S), 300MG IV DAY 1 AND 15?DOT: 04-AUG-2021, 20-J
     Route: 042
     Dates: start: 202001
  2. OCREVUS [Suspect]
     Active Substance: OCRELIZUMAB
     Indication: Multiple sclerosis
  3. OXYGEN [Concomitant]
     Active Substance: OXYGEN

REACTIONS (1)
  - COVID-19 [Recovered/Resolved]

NARRATIVE: CASE EVENT DATE: 20210818
